FAERS Safety Report 7215202-9 (Version None)
Quarter: 2011Q1

REPORT INFORMATION
  Report Type: 
  Country: None (occurrence: None)
  Receive Date: 20110107
  Receipt Date: 20101123
  Transmission Date: 20110831
  Serious: No
  Sender: FDA-Public Use
  Company Number: A0888643A

PATIENT
  Age: 70 Year
  Sex: Male
  Weight: 94.5 kg

DRUGS (9)
  1. ALLOPURINOL [Concomitant]
     Indication: GOUT
     Dosage: 300MG PER DAY
  2. SYNTHROID [Concomitant]
     Dosage: 25MCG PER DAY
  3. MELATONIN [Concomitant]
  4. CALCIUM + VITAMIN D [Concomitant]
     Dosage: 600MG PER DAY
  5. ASCORBIC ACID [Concomitant]
  6. UNKNOWN MEDICATION [Concomitant]
  7. MULTI-VITAMINS [Concomitant]
  8. LOVAZA [Suspect]
     Dosage: 4CAP PER DAY
     Route: 048
     Dates: start: 20100801, end: 20101020
  9. SAW PALMETTO [Concomitant]

REACTIONS (3)
  - RASH [None]
  - PRURITUS [None]
  - DRY SKIN [None]
